FAERS Safety Report 17439295 (Version 1)
Quarter: 2020Q1

REPORT INFORMATION
  Report Type: Report from Study
  Country: CA (occurrence: CA)
  Receive Date: 20200220
  Receipt Date: 20200220
  Transmission Date: 20200409
  Serious: Yes (Other)
  Sender: FDA-Public Use
  Company Number: CA-TEVA-2020-CA-1186020

PATIENT
  Age: 56 Year
  Sex: Female

DRUGS (14)
  1. CALCIUM [Concomitant]
     Active Substance: CALCIUM
     Route: 048
  2. COPAXONE [Concomitant]
     Active Substance: GLATIRAMER ACETATE
     Route: 065
  3. D-ALPHA TOCOPHEROL/DOCOSAHEXAENOIC ACID/EICOSAPENTAENOIC ACID [Concomitant]
     Route: 065
  4. VITAMIN B12[CYANOCOBALAMIN] [Concomitant]
     Route: 048
  5. GRAVOL [Concomitant]
     Active Substance: DIMENHYDRINATE
     Route: 048
  6. METHYLPREDNISOLONE SODIUM SUCCINATE. [Suspect]
     Active Substance: METHYLPREDNISOLONE SODIUM SUCCINATE
     Route: 042
  7. ACYCLOVIR. [Concomitant]
     Active Substance: ACYCLOVIR
     Dosage: 400 MILLIGRAM DAILY;
     Route: 048
  8. BENADRYL[DIPHENHYDRAMINE HYDROCHLORIDE] [Concomitant]
     Route: 065
  9. DILANTIN [Concomitant]
     Active Substance: PHENYTOIN
     Route: 048
  10. VITAMIN A [RETINOL] [Concomitant]
     Active Substance: RETINOL
     Route: 048
  11. ALEMTUZUMAB [Suspect]
     Active Substance: ALEMTUZUMAB
     Dosage: 12 MILLIGRAM DAILY;
     Route: 041
  12. CETIRIZINE HYDROCHLORIDE. [Concomitant]
     Active Substance: CETIRIZINE HYDROCHLORIDE
     Dosage: 20 MILLIGRAM DAILY;
     Route: 048
  13. RANITIDINE. [Concomitant]
     Active Substance: RANITIDINE
     Dosage: 300 MILLIGRAM DAILY;
     Route: 048
  14. VITAMIN D[ERGOCALCIFEROL] [Concomitant]
     Route: 048

REACTIONS (9)
  - Hypothermia [Recovered/Resolved]
  - Insomnia [Recovered/Resolved]
  - Irregular sleep wake rhythm disorder [Recovered/Resolved]
  - Asthenia [Recovered/Resolved]
  - Fatigue [Recovered/Resolved]
  - Feeling cold [Recovered/Resolved]
  - Infusion site haemorrhage [Recovered/Resolved]
  - Headache [Recovered/Resolved]
  - Infusion site swelling [Recovered/Resolved]
